FAERS Safety Report 6310639-4 (Version None)
Quarter: 2009Q3

REPORT INFORMATION
  Report Type: 
  Country: None (occurrence: None)
  Receive Date: 20090814
  Receipt Date: 20090803
  Transmission Date: 20100115
  Serious: Yes (Hospitalization)
  Sender: FDA-Public Use
  Company Number: FR-ALLERGAN-0910745US

PATIENT
  Age: 67 Year
  Sex: Male

DRUGS (2)
  1. BOTOX [Suspect]
     Indication: PHARYNGOESOPHAGEAL DIVERTICULUM
     Dosage: UNK, SINGLE
     Dates: start: 20081001, end: 20081001
  2. BOTOX [Suspect]
     Indication: OESOPHAGEAL SPASM

REACTIONS (5)
  - APHAGIA [None]
  - APHONIA [None]
  - ASPIRATION [None]
  - DYSPHAGIA [None]
  - INJECTION SITE HAEMORRHAGE [None]
